FAERS Safety Report 14410256 (Version 1)
Quarter: 2018Q1

REPORT INFORMATION
  Report Type: Spontaneous
  Country: US (occurrence: US)
  Receive Date: 20180119
  Receipt Date: 20180119
  Transmission Date: 20180509
  Serious: No
  Sender: FDA-Public Use
  Company Number: US-TEVA-2017-US-839625

PATIENT

DRUGS (1)
  1. RECLIPSEN [Suspect]
     Active Substance: DESOGESTREL\ETHINYL ESTRADIOL
     Indication: CONTRACEPTION
     Dosage: DESOGESTREL/ETHINYLESTRADIOL : 0.15 MG/0.03 MG
     Route: 065

REACTIONS (1)
  - Therapeutic response unexpected [Unknown]
